FAERS Safety Report 13553277 (Version 1)
Quarter: 2017Q2

REPORT INFORMATION
  Report Type: Spontaneous
  Country: US (occurrence: US)
  Receive Date: 20170516
  Receipt Date: 20170516
  Transmission Date: 20170830
  Serious: Yes (Hospitalization)
  Sender: FDA-Public Use
  Company Number: None

PATIENT
  Age: 40 Year
  Sex: Female
  Weight: 121.5 kg

DRUGS (1)
  1. PROTONIX [Suspect]
     Active Substance: PANTOPRAZOLE SODIUM
     Indication: GASTROINTESTINAL INFLAMMATION
     Dates: start: 20150803, end: 20150807

REACTIONS (3)
  - Back pain [None]
  - Impaired work ability [None]
  - Pancreatitis [None]

NARRATIVE: CASE EVENT DATE: 20150807
